FAERS Safety Report 9097232 (Version 1)
Quarter: 2013Q1

REPORT INFORMATION
  Report Type: Spontaneous
  Country: US (occurrence: US)
  Receive Date: 20130212
  Receipt Date: 20130212
  Transmission Date: 20140127
  Serious: Yes (Other)
  Sender: FDA-Public Use
  Company Number: US-JNJFOC-20130201796

PATIENT
  Sex: Male
  Weight: 106.6 kg

DRUGS (1)
  1. STELARA [Suspect]
     Indication: PSORIASIS
     Route: 058
     Dates: start: 2012, end: 201211

REACTIONS (1)
  - Bone disorder [Not Recovered/Not Resolved]
